FAERS Safety Report 7714828-3 (Version None)
Quarter: 2011Q3

REPORT INFORMATION
  Report Type: 
  Country: None (occurrence: None)
  Receive Date: 20110829
  Receipt Date: 20110819
  Transmission Date: 20111222
  Serious: Yes (Hospitalization, Other)
  Sender: FDA-Public Use
  Company Number: US-ASTELLAS-2011US003501

PATIENT
  Sex: Male

DRUGS (4)
  1. PROGRAF [Suspect]
     Dosage: UNK
     Route: 065
     Dates: start: 20110625
  2. CELLCEPT [Concomitant]
     Indication: RENAL TRANSPLANT
     Dosage: UNK
     Route: 065
  3. PREDNISONE [Concomitant]
     Indication: RENAL TRANSPLANT
     Dosage: UNK
     Route: 065
  4. PROGRAF [Suspect]
     Indication: RENAL TRANSPLANT
     Dosage: UNK
     Route: 065
     Dates: start: 20100801, end: 20110501

REACTIONS (3)
  - TREATMENT NONCOMPLIANCE [None]
  - RENAL INFARCT [None]
  - RENAL GRAFT LOSS [None]
